FAERS Safety Report 21647843 (Version 2)
Quarter: 2024Q4

REPORT INFORMATION
  Report Type: Report from Study
  Country: DE (occurrence: DE)
  Receive Date: 20221128
  Receipt Date: 20241204
  Transmission Date: 20250114
  Serious: No
  Sender: ROCHE
  Company Number: DE-ROCHE-3225657

PATIENT
  Age: 51 Year
  Sex: Male
  Weight: 78 kg

DRUGS (8)
  1. OCRELIZUMAB [Suspect]
     Active Substance: OCRELIZUMAB
     Indication: Relapsing multiple sclerosis
     Route: 042
     Dates: start: 20181112, end: 20181126
  2. OCRELIZUMAB [Suspect]
     Active Substance: OCRELIZUMAB
     Route: 042
     Dates: start: 20190521
  3. COVID-19 VACCINE [Concomitant]
     Indication: Prophylaxis
     Route: 030
     Dates: start: 20210413, end: 20210413
  4. COVID-19 VACCINE [Concomitant]
     Route: 030
     Dates: start: 20211201, end: 20211201
  5. COVID-19 VACCINE [Concomitant]
     Route: 030
     Dates: start: 20210525, end: 20210525
  6. PANTOPRAZOLE SODIUM [Concomitant]
     Active Substance: PANTOPRAZOLE SODIUM
     Indication: Dyspepsia
     Dosage: DEFINITION OF THE INTERVAL: AS REQUIRED
     Route: 048
     Dates: start: 2009
  7. IBUPROFEN [Concomitant]
     Active Substance: IBUPROFEN
     Indication: Headache
     Route: 048
     Dates: start: 202202
  8. IBUPROFEN [Concomitant]
     Active Substance: IBUPROFEN
     Indication: Back pain

REACTIONS (2)
  - COVID-19 [Recovered/Resolved]
  - COVID-19 [Recovered/Resolved]

NARRATIVE: CASE EVENT DATE: 20220901
